FAERS Safety Report 6076155-2 (Version None)
Quarter: 2009Q1

REPORT INFORMATION
  Report Type: 
  Country: None (occurrence: None)
  Receive Date: 20090212
  Receipt Date: 20090130
  Transmission Date: 20090719
  Serious: Yes (Hospitalization)
  Sender: FDA-Public Use
  Company Number: BE-B.I. PHARMACEUTICALS,INC./RIDGEFIELD-2009-BL-00026BL

PATIENT
  Age: 37 Year
  Sex: Female

DRUGS (1)
  1. VIRAMUNE [Suspect]
     Indication: HIV INFECTION
     Dosage: 200MG
     Route: 048
     Dates: start: 20090118

REACTIONS (2)
  - MUCOSAL INFLAMMATION [None]
  - RASH [None]
